FAERS Safety Report 5043213-0 (Version None)
Quarter: 2006Q3

REPORT INFORMATION
  Report Type: 
  Country: None (occurrence: None)
  Receive Date: 20060703
  Receipt Date: 20060703
  Transmission Date: 20061208
  Serious: Yes (Other)
  Sender: FDA-Public Use
  Company Number: None

PATIENT
  Sex: Male
  Weight: 79.8331 kg

DRUGS (15)
  1. BEVACIZUMAB   5MG/KG,   GENENTECH [Suspect]
     Indication: PANCREATIC NEOPLASM
     Dosage: 400 MG QS   Q2WEEKS   IV
     Route: 042
     Dates: start: 20060502, end: 20060530
  2. DEXAMETHASONE [Suspect]
     Indication: PANCREATIC NEOPLASM
     Dosage: 20MG    Q2WEEKS  IV
     Route: 042
     Dates: start: 20060502, end: 20060530
  3. LORAZEPAM [Suspect]
     Indication: PANCREATIC NEOPLASM
     Dosage: 1MG   Q2WEEKS   PO
     Route: 048
     Dates: start: 20060502, end: 20060530
  4. GRANISETRON,  10 MCG/KG [Suspect]
     Indication: PANCREATIC NEOPLASM
     Dosage: 800 MCG   Q2WEEKS   IV
     Route: 042
     Dates: start: 20060502, end: 20060530
  5. OXALIPLATIN,  85 MG/M2,  SANOFI-SYNTHELABO [Suspect]
     Indication: PANCREATIC NEOPLASM
     Dosage: 170 MG   Q2WEEKS  IV
     Route: 042
     Dates: start: 20060502, end: 20060530
  6. LEUCOVORIN CALCIUM [Suspect]
     Indication: PANCREATIC NEOPLASM
     Dosage: 400 MG   Q2WEEKS  IV
     Route: 042
     Dates: start: 20060502, end: 20060530
  7. FLUOROURACIL [Suspect]
     Indication: PANCREATIC NEOPLASM
     Dosage: 800 MG  + 2400 MG   Q2WEEKS   IV
     Route: 042
     Dates: start: 20060502, end: 20060530
  8. VICODIN [Concomitant]
  9. IMODIUM [Concomitant]
  10. ATIVAN [Concomitant]
  11. LISINOPRIL [Concomitant]
  12. NORVASC [Concomitant]
  13. ASPIRIN [Concomitant]
  14. ALLEGRA [Concomitant]
  15. PRILOSEC [Concomitant]

REACTIONS (8)
  - ABDOMINAL PAIN [None]
  - DIARRHOEA [None]
  - DYSPNOEA [None]
  - ENTERITIS [None]
  - FEBRILE NEUTROPENIA [None]
  - NEUTROPENIA [None]
  - PYREXIA [None]
  - SMALL INTESTINAL OBSTRUCTION [None]
